FAERS Safety Report 6539390-2 (Version None)
Quarter: 2010Q1

REPORT INFORMATION
  Report Type: 
  Country: None (occurrence: None)
  Receive Date: 20100111
  Receipt Date: 20100104
  Transmission Date: 20100710
  Serious: Yes (Death, Other)
  Sender: FDA-Public Use
  Company Number: 2009003954

PATIENT
  Age: 61 Year
  Sex: Female

DRUGS (3)
  1. ERLOTINIB        (ERLOTINIB) (TABLET) [Suspect]
     Indication: ADENOCARCINOMA PANCREAS
     Dosage: 100 MG, ORAL
     Route: 048
     Dates: start: 20090518
  2. GEMCITABINE HYDROCHLORIDE         (INJECTION FOR INFUSION) [Suspect]
     Indication: PANCREATIC CARCINOMA
     Dosage: 1000 MG/M2, INTRAVENOUS
     Route: 042
     Dates: start: 20090818
  3. PANITUMUMAB [Suspect]
     Indication: PANCREATIC CARCINOMA
     Dosage: 4 MG/KG, INTRAVENOUS
     Route: 042
     Dates: start: 20090818

REACTIONS (6)
  - ADENOCARCINOMA PANCREAS [None]
  - DYSPNOEA EXERTIONAL [None]
  - GENERAL PHYSICAL HEALTH DETERIORATION [None]
  - HYPOXIA [None]
  - INFECTION [None]
  - MALIGNANT NEOPLASM PROGRESSION [None]
